FAERS Safety Report 20854122 (Version 1)
Quarter: 2022Q2

REPORT INFORMATION
  Report Type: Spontaneous
  Country: DE (occurrence: DE)
  Receive Date: 20220520
  Receipt Date: 20220520
  Transmission Date: 20220720
  Serious: Yes (Other)
  Sender: FDA-Public Use
  Company Number: None

PATIENT
  Sex: Male

DRUGS (1)
  1. CYTOTEC [Suspect]
     Active Substance: MISOPROSTOL
     Indication: Labour induction
     Dosage: DAILY OVER THREE DAYS
     Route: 064
     Dates: start: 20120905, end: 20120907

REACTIONS (11)
  - Foetal exposure during delivery [Unknown]
  - Autism spectrum disorder [Not Recovered/Not Resolved]
  - Poor feeding infant [Unknown]
  - Speech disorder developmental [Not Recovered/Not Resolved]
  - Poor feeding infant [Unknown]
  - Attention deficit hyperactivity disorder [Not Recovered/Not Resolved]
  - Hypotonia [Not Recovered/Not Resolved]
  - Sensory integrative dysfunction [Not Recovered/Not Resolved]
  - Developmental delay [Not Recovered/Not Resolved]
  - Screaming [Unknown]
  - Psychomotor hyperactivity [Unknown]

NARRATIVE: CASE EVENT DATE: 20120905
